FAERS Safety Report 21074074 (Version 2)
Quarter: 2022Q3

REPORT INFORMATION
  Report Type: Spontaneous
  Country: US (occurrence: US)
  Receive Date: 20220713
  Receipt Date: 20220721
  Transmission Date: 20221027
  Serious: No
  Sender: FDA-Public Use
  Company Number: US-JNJFOC-20220705226

PATIENT
  Sex: Female

DRUGS (2)
  1. SPRAVATO [Suspect]
     Active Substance: ESKETAMINE
     Indication: Depression
     Dates: end: 202106
  2. SPRAVATO [Suspect]
     Active Substance: ESKETAMINE
     Dates: start: 202112

REACTIONS (2)
  - Drug ineffective [Unknown]
  - Depression [Unknown]
